FAERS Safety Report 7769016-1 (Version None)
Quarter: 2011Q3

REPORT INFORMATION
  Report Type: 
  Country: None (occurrence: None)
  Receive Date: 20110920
  Receipt Date: 20110906
  Transmission Date: 20111222
  Serious: Yes (Disabling)
  Sender: FDA-Public Use
  Company Number: 2011-2047

PATIENT
  Age: 62 Year
  Sex: Female

DRUGS (2)
  1. DYSPORT [Suspect]
     Indication: OFF LABEL USE
     Dosage: 500 UNITS (500 UNITS,SINGLE CYCLE),INTRAMUSCULAR
     Route: 030
     Dates: start: 20100702, end: 20100702
  2. DYSPORT [Suspect]
     Indication: HEAD TITUBATION
     Dosage: 500 UNITS (500 UNITS,SINGLE CYCLE),INTRAMUSCULAR
     Route: 030
     Dates: start: 20100702, end: 20100702

REACTIONS (17)
  - ASTHENIA [None]
  - PAIN IN EXTREMITY [None]
  - LUNG DISORDER [None]
  - MUSCULAR WEAKNESS [None]
  - DYSPNOEA [None]
  - CHEST PAIN [None]
  - MUSCULOSKELETAL STIFFNESS [None]
  - GASTROOESOPHAGEAL REFLUX DISEASE [None]
  - ORGANISING PNEUMONIA [None]
  - LOCAL SWELLING [None]
  - PARAESTHESIA [None]
  - NECK PAIN [None]
  - PYREXIA [None]
  - INCORRECT DOSE ADMINISTERED [None]
  - ESSENTIAL TREMOR [None]
  - DISTURBANCE IN ATTENTION [None]
  - IMPAIRED DRIVING ABILITY [None]
